FAERS Safety Report 24434041 (Version 2)
Quarter: 2024Q4

REPORT INFORMATION
  Report Type: Spontaneous
  Country: FR (occurrence: FR)
  Receive Date: 20241014
  Receipt Date: 20241112
  Transmission Date: 20250115
  Serious: Yes (Hospitalization)
  Sender: PFIZER
  Company Number: None

PATIENT
  Age: 58 Year
  Sex: Female
  Weight: 51 kg

DRUGS (15)
  1. AZITHROMYCIN [Suspect]
     Active Substance: AZITHROMYCIN
     Indication: Antibiotic prophylaxis
     Dosage: 300 MG, DAILY
     Route: 048
     Dates: start: 202310, end: 20240911
  2. BACTRIM [Suspect]
     Active Substance: SULFAMETHOXAZOLE\TRIMETHOPRIM
     Indication: Antibiotic prophylaxis
     Dosage: 400/80 MG
     Route: 048
     Dates: start: 20240809, end: 20240911
  3. OFEV [Suspect]
     Active Substance: NINTEDANIB
     Indication: Interstitial lung disease
     Dosage: 300 MG, 1X/DAY(CAPSULE MOLLE)
     Route: 048
     Dates: start: 202203, end: 20240911
  4. TRACLEER [Suspect]
     Active Substance: BOSENTAN
     Indication: Interstitial lung disease
     Dosage: 250 MG, DAILY
     Route: 048
     Dates: start: 2018, end: 20240911
  5. AMIKACIN [Concomitant]
     Active Substance: AMIKACIN
     Dosage: 3375 MG, WEEKLY
     Route: 042
     Dates: start: 202404, end: 20240911
  6. PREDNISONE [Concomitant]
     Active Substance: PREDNISONE
     Dosage: UNK
  7. POTASSIUM CHLORIDE [Concomitant]
     Active Substance: POTASSIUM CHLORIDE
     Dosage: UNK
  8. DOMPERIDONE [Concomitant]
     Active Substance: DOMPERIDONE
     Dosage: UNK
  9. ESOMEPRAZOLE [Concomitant]
     Active Substance: ESOMEPRAZOLE
     Dosage: 80 MG, DAILY
     Route: 048
     Dates: end: 20240911
  10. ETHAMBUTOL [Concomitant]
     Active Substance: ETHAMBUTOL HYDROCHLORIDE
     Dosage: 10000 MG, 1X/DAY
     Route: 048
     Dates: start: 202310, end: 20240911
  11. FUROSEMIDE [Concomitant]
     Active Substance: FUROSEMIDE
     Dosage: UNK
  12. LEVOTHYROXINE [Concomitant]
     Active Substance: LEVOTHYROXINE
     Dosage: UNK
  13. DILTIAZEM HYDROCHLORIDE [Concomitant]
     Active Substance: DILTIAZEM HYDROCHLORIDE
     Dosage: UNK
  14. REVATIO [Concomitant]
     Active Substance: SILDENAFIL CITRATE
     Indication: Interstitial lung disease
     Dosage: 60 MG, DAILY
     Route: 048
     Dates: end: 20240911
  15. RIFABUTIN [Concomitant]
     Active Substance: RIFABUTIN
     Dosage: 300 MG, DAILY
     Route: 048
     Dates: start: 202310, end: 20240911

REACTIONS (5)
  - Hepatic cytolysis [Recovering/Resolving]
  - Jaundice [Recovering/Resolving]
  - Cholestasis [Recovering/Resolving]
  - Hepatitis cholestatic [Not Recovered/Not Resolved]
  - Off label use [Unknown]

NARRATIVE: CASE EVENT DATE: 20231001
